FAERS Safety Report 11844613 (Version 1)
Quarter: 2015Q4

REPORT INFORMATION
  Report Type: Spontaneous
  Country: US (occurrence: None)
  Receive Date: 20151216
  Receipt Date: 20151216
  Transmission Date: 20160305
  Serious: No
  Sender: FDA-Public Use
  Company Number: None

PATIENT
  Age: 50 Year
  Sex: Female
  Weight: 77.11 kg

DRUGS (9)
  1. CELECOXIB 200 MG APOTEX [Suspect]
     Active Substance: CELECOXIB
     Indication: MUSCLE TIGHTNESS
     Dosage: ONE TWICE A DAY  TWICE DAILY TAKEN BY MOUTH
     Route: 048
  2. SINGULAIR (GENERIC) [Concomitant]
  3. RESTASIS [Concomitant]
     Active Substance: CYCLOSPORINE
  4. CELECOXIB 200 MG APOTEX [Suspect]
     Active Substance: CELECOXIB
     Indication: PAIN
     Dosage: ONE TWICE A DAY  TWICE DAILY TAKEN BY MOUTH
     Route: 048
  5. CLARITIN (GENERIC) [Concomitant]
  6. CELECOXIB 200 MG APOTEX [Suspect]
     Active Substance: CELECOXIB
     Indication: UNDIFFERENTIATED CONNECTIVE TISSUE DISEASE
     Dosage: ONE TWICE A DAY  TWICE DAILY TAKEN BY MOUTH
     Route: 048
  7. QVAR [Concomitant]
     Active Substance: BECLOMETHASONE DIPROPIONATE
  8. FLAX OIL CAPSULES [Concomitant]
  9. VIT-D [Concomitant]

REACTIONS (7)
  - Muscle spasms [None]
  - Product physical issue [None]
  - Pain [None]
  - Muscle tightness [None]
  - Drug ineffective [None]
  - Product substitution issue [None]
  - Migraine [None]
